FAERS Safety Report 4445846-9 (Version None)
Quarter: 2004Q3

REPORT INFORMATION
  Report Type: 
  Country: None (occurrence: None)
  Receive Date: 20040908
  Receipt Date: 20040908
  Transmission Date: 20050211
  Serious: Yes (Hospitalization)
  Sender: FDA-Public Use
  Company Number: None

PATIENT
  Age: 61 Year
  Sex: Male

DRUGS (10)
  1. NPH INSULIN [Suspect]
     Indication: DIABETES MELLITUS INSULIN-DEPENDENT
     Dosage: 60 Q AM /45 Q PM
     Dates: start: 19950301
  2. AVANDIA [Concomitant]
  3. ASPIRIN [Concomitant]
  4. INSULIN REG [Concomitant]
  5. ISOSORBIDE [Concomitant]
  6. METOPROLOL [Concomitant]
  7. TERAZOSIN HCL [Concomitant]
  8. CLOPIDOGREL [Concomitant]
  9. SERTRALINE HCL [Concomitant]
  10. LISINOPRIL [Concomitant]

REACTIONS (1)
  - HYPOGLYCAEMIA [None]
